FAERS Safety Report 11855352 (Version 1)
Quarter: 2015Q4

REPORT INFORMATION
  Report Type: Spontaneous
  Country: US (occurrence: None)
  Receive Date: 20151218
  Receipt Date: 20151218
  Transmission Date: 20160305
  Serious: Yes (Hospitalization)
  Sender: FDA-Public Use
  Company Number: None

PATIENT
  Age: 31 Year
  Sex: Female
  Weight: 91.63 kg

DRUGS (4)
  1. ENDOMETRIN [Suspect]
     Active Substance: PROGESTERONE
     Indication: IN VITRO FERTILISATION
     Route: 067
     Dates: start: 20151211
  2. PROGESTERONE IN OIL 50MG/ML WEST-WARD PHARMACEUTICALS [Suspect]
     Active Substance: PROGESTERONE
     Indication: IN VITRO FERTILISATION
     Dosage: 1ML  EVERY 3RD DAY
     Route: 030
     Dates: start: 20151211
  3. OXYCODONE [Concomitant]
     Active Substance: OXYCODONE
  4. DEL ESTROGEN [Concomitant]

REACTIONS (3)
  - Ectopic pregnancy [None]
  - Vaginal haemorrhage [None]
  - Pregnancy [None]

NARRATIVE: CASE EVENT DATE: 20151207
